FAERS Safety Report 24565093 (Version 1)
Quarter: 2024Q4

REPORT INFORMATION
  Report Type: Spontaneous
  Country: ES (occurrence: ES)
  Receive Date: 20241030
  Receipt Date: 20241030
  Transmission Date: 20250115
  Serious: Yes (Hospitalization)
  Sender: XELLIA PHARMACEUTICALS
  Company Number: None

PATIENT
  Age: 61 Year
  Sex: Male

DRUGS (5)
  1. DAPTOMYCIN [Suspect]
     Active Substance: DAPTOMYCIN
     Indication: Endocarditis
     Dates: start: 20240627, end: 20240807
  2. WARFARIN [Concomitant]
     Active Substance: WARFARIN
     Dates: end: 20240806
  3. ASPIRIN [Concomitant]
     Active Substance: ASPIRIN
     Dates: end: 20240806
  4. ALLOPURINOL [Concomitant]
     Active Substance: ALLOPURINOL
     Dates: end: 20240806
  5. MYCOPHENOLIC ACID [Concomitant]
     Active Substance: MYCOPHENOLIC ACID
     Dates: start: 202406, end: 20240808

REACTIONS (1)
  - Acute interstitial pneumonitis [Recovered/Resolved]

NARRATIVE: CASE EVENT DATE: 20240806
